FAERS Safety Report 5824443-4 (Version None)
Quarter: 2008Q3

REPORT INFORMATION
  Report Type: 
  Country: None (occurrence: None)
  Receive Date: 20080728
  Receipt Date: 20080718
  Transmission Date: 20090109
  Serious: Yes (Death)
  Sender: FDA-Public Use
  Company Number: B0528435A

PATIENT
  Age: 63 Year
  Sex: Male

DRUGS (10)
  1. ARRANON [Suspect]
     Dosage: 2000MG PER DAY
     Route: 042
     Dates: start: 20080623, end: 20080627
  2. PENTCILLIN [Concomitant]
     Indication: PNEUMONIA
     Dosage: 4G PER DAY
     Route: 042
     Dates: start: 20080619, end: 20080620
  3. ITRIZOLE [Concomitant]
     Indication: PNEUMONIA
     Dosage: 200MG PER DAY
     Route: 042
     Dates: start: 20080619, end: 20080621
  4. MAXIPIME [Concomitant]
     Indication: PNEUMONIA
     Dosage: 4G PER DAY
     Route: 042
     Dates: start: 20080620, end: 20080626
  5. TARGOCID [Concomitant]
     Indication: PNEUMONIA
     Dosage: 400MG PER DAY
     Route: 042
     Dates: start: 20080621, end: 20080702
  6. FUNGIZONE [Concomitant]
     Indication: PNEUMONIA
     Dosage: 5MG PER DAY
     Route: 042
     Dates: start: 20080621, end: 20080701
  7. LEVOFLOXACIN [Concomitant]
     Indication: PNEUMONIA
     Dosage: 400MG PER DAY
     Route: 048
     Dates: start: 20080620, end: 20080625
  8. UNKNOWN [Concomitant]
     Indication: DISSEMINATED INTRAVASCULAR COAGULATION
     Route: 042
     Dates: start: 20080620, end: 20080701
  9. TAZOCIN [Concomitant]
     Indication: DISSEMINATED INTRAVASCULAR COAGULATION
     Dosage: 5G PER DAY
     Route: 042
     Dates: start: 20080628, end: 20080701
  10. NEUART [Concomitant]
     Indication: DISSEMINATED INTRAVASCULAR COAGULATION
     Route: 042
     Dates: start: 20080620, end: 20080626

REACTIONS (12)
  - DISORIENTATION [None]
  - HAEMATOCRIT DECREASED [None]
  - HAEMOGLOBIN DECREASED [None]
  - PLATELET COUNT DECREASED [None]
  - PRODUCTIVE COUGH [None]
  - PULMONARY HAEMORRHAGE [None]
  - RED BLOOD CELL COUNT DECREASED [None]
  - RESPIRATORY ARREST [None]
  - RESTLESSNESS [None]
  - SPEECH DISORDER [None]
  - VENTRICULAR FIBRILLATION [None]
  - WHITE BLOOD CELL COUNT DECREASED [None]
